FAERS Safety Report 14545942 (Version 3)
Quarter: 2018Q3

REPORT INFORMATION
  Report Type: Report from Study
  Country: US (occurrence: US)
  Receive Date: 20180219
  Receipt Date: 20180921
  Transmission Date: 20181010
  Serious: Yes (Other)
  Sender: FDA-Public Use
  Company Number: US-ROCHE-2041787

PATIENT
  Sex: Female
  Weight: 55.8 kg

DRUGS (11)
  1. COENZYME Q10 [Concomitant]
     Active Substance: UBIDECARENONE
     Route: 048
  2. NORVASC [Concomitant]
     Active Substance: AMLODIPINE BESYLATE
     Route: 048
  3. CELLCEPT [Suspect]
     Active Substance: MYCOPHENOLATE MOFETIL\MYCOPHENOLATE MOFETIL HYDROCHLORIDE
     Indication: RENAL TRANSPLANT
     Route: 048
  4. PROGRAF [Concomitant]
     Active Substance: TACROLIMUS\TACROLIMUS ANHYDROUS
     Route: 048
  5. GLUCOTROL [Concomitant]
     Active Substance: GLIPIZIDE
     Route: 048
  6. ERGOCALCIFEROL. [Concomitant]
     Active Substance: ERGOCALCIFEROL
     Route: 048
  7. COZAAR [Concomitant]
     Active Substance: LOSARTAN POTASSIUM
     Route: 048
  8. CURCUMIN [Concomitant]
     Active Substance: CURCUMIN
     Route: 048
  9. CALCIUM CITRATE WITH VITAMIN D3 [Concomitant]
     Dosage: 315?200 MG
     Route: 048
  10. OMEGA?3 FATTY ACIDS/VITAMIN E [Concomitant]
     Dosage: 3000 UNITS
     Route: 048
  11. FISH OIL [Concomitant]
     Active Substance: FISH OIL
     Route: 048

REACTIONS (7)
  - Blood sodium decreased [Unknown]
  - Abdominal discomfort [Unknown]
  - Anxiety [Unknown]
  - Ill-defined disorder [Unknown]
  - Stress [Unknown]
  - Tremor [Unknown]
  - Blood phosphorus increased [Unknown]
